FAERS Safety Report 6241604-3 (Version None)
Quarter: 2009Q2

REPORT INFORMATION
  Report Type: 
  Country: None (occurrence: None)
  Receive Date: 20090623
  Receipt Date: 20050110
  Transmission Date: 20091009
  Serious: Yes (Hospitalization)
  Sender: FDA-Public Use
  Company Number: CA-ROCHE-387527

PATIENT
  Sex: Male
  Weight: 85 kg

DRUGS (101)
  1. DACLIZUMAB [Suspect]
     Dosage: FORMULATION AS PER PROTOCOL
     Route: 042
     Dates: start: 20040922
  2. DACLIZUMAB [Suspect]
     Route: 042
     Dates: start: 20041206
  3. MYCOPHENOLATE MOFETIL [Suspect]
     Route: 048
     Dates: start: 20040827, end: 20040827
  4. MYCOPHENOLATE MOFETIL [Suspect]
     Route: 048
     Dates: start: 20040828
  5. MYCOPHENOLATE MOFETIL [Suspect]
     Route: 048
     Dates: start: 20040830, end: 20040830
  6. MYCOPHENOLATE MOFETIL [Suspect]
     Route: 048
     Dates: start: 20040906, end: 20040906
  7. MYCOPHENOLATE MOFETIL [Suspect]
     Route: 048
     Dates: start: 20040907
  8. MYCOPHENOLATE MOFETIL [Suspect]
     Route: 048
     Dates: start: 20040915, end: 20040915
  9. MYCOPHENOLATE MOFETIL [Suspect]
     Route: 048
     Dates: start: 20040916, end: 20040916
  10. MYCOPHENOLATE MOFETIL [Suspect]
     Route: 048
     Dates: start: 20040917, end: 20040917
  11. MYCOPHENOLATE MOFETIL [Suspect]
     Route: 048
     Dates: start: 20040918, end: 20040918
  12. MYCOPHENOLATE MOFETIL [Suspect]
     Route: 048
     Dates: start: 20040919
  13. MYCOPHENOLATE MOFETIL [Suspect]
     Route: 048
     Dates: start: 20040925
  14. MYCOPHENOLATE MOFETIL [Suspect]
     Route: 048
     Dates: start: 20041129
  15. MYCOPHENOLATE MOFETIL [Suspect]
     Route: 048
     Dates: start: 20041222, end: 20041222
  16. MYCOPHENOLATE MOFETIL [Suspect]
     Route: 048
     Dates: start: 20041223
  17. MYCOPHENOLATE MOFETIL [Suspect]
     Route: 048
     Dates: start: 20050107
  18. MYCOPHENOLATE MOFETIL [Suspect]
     Route: 048
     Dates: start: 20050128
  19. MYCOPHENOLATE MOFETIL [Suspect]
     Route: 048
     Dates: start: 20050218
  20. MYCOPHENOLATE MOFETIL [Suspect]
     Dosage: ROUTE: IG
     Route: 050
     Dates: start: 20040831, end: 20040831
  21. MYCOPHENOLATE MOFETIL [Suspect]
     Route: 050
     Dates: start: 20040901, end: 20040901
  22. MYCOPHENOLATE MOFETIL [Suspect]
     Dosage: FORM: VIAL
     Route: 042
     Dates: start: 20040901, end: 20040901
  23. MYCOPHENOLATE MOFETIL [Suspect]
     Route: 042
     Dates: start: 20040902
  24. MYCOPHENOLATE MOFETIL [Suspect]
     Route: 042
     Dates: start: 20040905, end: 20040905
  25. MYCOPHENOLATE MOFETIL [Suspect]
     Route: 042
     Dates: start: 20040906, end: 20040906
  26. CYCLOSPORINE [Suspect]
     Dosage: DRUG: CYCLOSPORINE
     Route: 048
     Dates: start: 20040827, end: 20040830
  27. CYCLOSPORINE [Suspect]
     Dosage: DOSING AMOUNT CAPTURED IN MG AS 287.5 GRAM BEING A VERY HIGH DOSE SEEMS TO BE A TYPO ERROR
     Route: 048
     Dates: start: 20040904, end: 20040904
  28. CYCLOSPORINE [Suspect]
     Route: 048
     Dates: start: 20040905
  29. CYCLOSPORINE [Suspect]
     Route: 048
     Dates: start: 20041005
  30. CYCLOSPORINE [Suspect]
     Route: 048
     Dates: start: 20041109
  31. CYCLOSPORINE [Suspect]
     Route: 048
     Dates: start: 20041203
  32. CYCLOSPORINE [Suspect]
     Route: 048
     Dates: start: 20050315
  33. CYCLOSPORINE [Suspect]
     Route: 048
     Dates: start: 20051220
  34. CYCLOSPORINE [Suspect]
     Route: 048
     Dates: start: 20060112
  35. CYCLOSPORINE [Suspect]
     Route: 048
     Dates: start: 20060303
  36. CYCLOSPORINE [Suspect]
     Route: 048
     Dates: start: 20060601
  37. CYCLOSPORINE [Suspect]
     Route: 048
     Dates: start: 20070306
  38. CYCLOSPORINE [Suspect]
     Dosage: DRUG: CYCLOSPORINE, ROUTE: PO
     Route: 050
     Dates: start: 20040831, end: 20040901
  39. CYCLOSPORINE [Suspect]
     Dosage: ROUTE: IG
     Route: 050
     Dates: start: 20040901, end: 20040903
  40. CYCLOSPORINE [Suspect]
     Dosage: DRUG: CYCLOSPORINE
     Route: 048
     Dates: start: 20040903, end: 20040903
  41. SIROLIMUS [Suspect]
     Route: 065
  42. TACROLIMUS [Suspect]
     Route: 065
  43. HYDROCORTISONE SODIUM SUCCINATE [Suspect]
     Route: 042
     Dates: start: 20041217
  44. METHYLPREDNISOLONE SODIUM SUCCINATE [Suspect]
     Dosage: DRUG: METHYPREDNISOLONE SODIUM SUCCINATE, ROUTE: IV
     Route: 050
     Dates: start: 20040828, end: 20040828
  45. METHYLPREDNISOLONE SODIUM SUCCINATE [Suspect]
     Dosage: ROUTE: IV
     Route: 050
     Dates: start: 20040829, end: 20040829
  46. METHYLPREDNISOLONE SODIUM SUCCINATE [Suspect]
     Dosage: ROUTE: IV
     Route: 050
     Dates: start: 20040830, end: 20040830
  47. METHYLPREDNISOLONE SODIUM SUCCINATE [Suspect]
     Dosage: ROUTE: IV
     Route: 050
     Dates: start: 20040831, end: 20040831
  48. METHYLPREDNISOLONE SODIUM SUCCINATE [Suspect]
     Dosage: ROUTE: IV
     Route: 050
     Dates: start: 20040901, end: 20040901
  49. METHYLPREDNISOLONE SODIUM SUCCINATE [Suspect]
     Dosage: ROUTE: IV
     Route: 050
     Dates: start: 20040902, end: 20040902
  50. METHYLPREDNISOLONE SODIUM SUCCINATE [Suspect]
     Dosage: ROUTE: PO; DOSING AMOUNT CAPTURED IN MG AS 30 GRAM BEING A VERY HIGH DOSE SEEMS TO BE A TYPO ERROR
     Route: 050
     Dates: start: 20040903
  51. METHYLPREDNISOLONE SODIUM SUCCINATE [Suspect]
     Dosage: ROUTE: IV
     Route: 050
     Dates: start: 20040914, end: 20040914
  52. METHYLPREDNISOLONE SODIUM SUCCINATE [Suspect]
     Dosage: ROUTE: PO
     Route: 050
     Dates: start: 20040915
  53. METHYLPREDNISOLONE SODIUM SUCCINATE [Suspect]
     Dosage: ROUTE: IV
     Route: 050
     Dates: start: 20040917, end: 20040918
  54. PREDNISONE [Suspect]
     Route: 048
     Dates: start: 20040904, end: 20040904
  55. PREDNISONE [Suspect]
     Route: 048
     Dates: start: 20040905, end: 20040905
  56. PREDNISONE [Suspect]
     Route: 048
     Dates: start: 20040906, end: 20040906
  57. PREDNISONE [Suspect]
     Route: 048
     Dates: start: 20040907
  58. PREDNISONE [Suspect]
     Route: 048
     Dates: start: 20041213
  59. PREDNISONE [Suspect]
     Route: 048
     Dates: start: 20041214
  60. PREDNISONE [Suspect]
     Route: 048
     Dates: start: 20041218
  61. PREDNISONE [Suspect]
     Route: 048
     Dates: start: 20050315
  62. PREDNISONE [Suspect]
     Route: 048
     Dates: start: 20050719
  63. RISEDRONATE SODIUM [Concomitant]
     Indication: OSTEOPOROSIS
     Dosage: DRUG: RISEDRONATE SODIUN HEMIPENTAHYDRATE
     Route: 048
     Dates: start: 20040924
  64. ACEBUTOLOL HYDROCHLORIDE [Concomitant]
     Indication: HYPERTENSION
     Route: 048
     Dates: start: 20040831
  65. SEPTRA [Concomitant]
     Indication: INFECTION PROPHYLAXIS
     Route: 048
     Dates: start: 20040902, end: 20041129
  66. SEPTRA [Concomitant]
     Route: 048
     Dates: start: 20041213, end: 20051129
  67. ENALAPRIL MALEATE [Concomitant]
     Indication: HYPERTENSION
     Route: 048
     Dates: start: 20041102, end: 20041213
  68. ENALAPRIL MALEATE [Concomitant]
     Route: 048
     Dates: start: 20050314
  69. ENALAPRIL MALEATE [Concomitant]
     Route: 048
     Dates: start: 20050509
  70. CYANOCOBALAMIN [Concomitant]
     Route: 058
     Dates: start: 20041004
  71. CYANOCOBALAMIN [Concomitant]
     Route: 058
     Dates: start: 20041011, end: 20060302
  72. ACETAMINOPHEN [Concomitant]
     Route: 048
     Dates: start: 20040902, end: 20040906
  73. ACETAMINOPHEN [Concomitant]
     Route: 048
     Dates: start: 20061201, end: 20061216
  74. AMLODIPINE BESYLATE [Concomitant]
     Route: 048
     Dates: start: 20040916, end: 20041101
  75. AMLODIPINE BESYLATE [Concomitant]
     Route: 048
     Dates: start: 20041216
  76. AMLODIPINE BESYLATE [Concomitant]
     Route: 048
     Dates: start: 20050121
  77. AMLODIPINE BESYLATE [Concomitant]
     Route: 048
     Dates: start: 20050315
  78. BUPIVACAINE HYDROCHLORIDE [Concomitant]
     Route: 042
     Dates: start: 20040828, end: 20040901
  79. CLONAZEPAM [Concomitant]
     Route: 048
     Dates: start: 20040829
  80. CLONIDINE [Concomitant]
     Dosage: DRUG: CLONIDINE HYDROCHLORIDE
     Route: 048
     Dates: start: 20040829, end: 20040925
  81. CLONIDINE [Concomitant]
     Route: 048
     Dates: start: 20041130, end: 20041224
  82. DIMENHYDRINATE [Concomitant]
     Route: 042
     Dates: start: 20040830, end: 20040830
  83. DIMENHYDRINATE [Concomitant]
     Route: 042
     Dates: start: 20040831
  84. FAMOTIDINE [Concomitant]
     Route: 042
     Dates: start: 20040828, end: 20040903
  85. FOLIC ACID [Concomitant]
     Route: 048
     Dates: start: 20041129
  86. FUROSEMIDE [Concomitant]
     Route: 042
     Dates: start: 20040828, end: 20040828
  87. FUROSEMIDE [Concomitant]
     Route: 042
     Dates: start: 20040829
  88. HEPARIN SODIUM [Concomitant]
     Route: 058
     Dates: start: 20040828, end: 20040913
  89. INSULINE [Concomitant]
     Route: 058
     Dates: start: 20040828, end: 20040925
  90. LORAZEPAM [Concomitant]
     Route: 048
     Dates: start: 20040831
  91. MAGNESIUM SULFATE [Concomitant]
     Route: 042
     Dates: start: 20040913
  92. MAXERAN [Concomitant]
     Route: 042
     Dates: start: 20040828, end: 20040830
  93. MORPHINE [Concomitant]
     Route: 058
     Dates: start: 20040831, end: 20040902
  94. MYCOSTATIN [Concomitant]
     Route: 048
     Dates: start: 20040828, end: 20041229
  95. OXYCODONE HYDROCHLORIDE [Concomitant]
     Route: 048
     Dates: start: 20040905, end: 20040922
  96. RANITIDINE HYDROCHLORIDE [Concomitant]
     Route: 048
     Dates: start: 20040903, end: 20060302
  97. SODIUM ACID PHOSPHATE [Concomitant]
     Route: 048
     Dates: start: 20040920
  98. SODIUM POLYSTYRENE SULFONATE [Concomitant]
     Route: 048
     Dates: start: 20040912
  99. SODIUM POLYSTYRENE SULFONATE [Concomitant]
     Route: 048
     Dates: start: 20040915
  100. SODIUM POLYSTYRENE SULFONATE [Concomitant]
     Route: 048
     Dates: start: 20040920
  101. SODIUM POLYSTYRENE SULFONATE [Concomitant]
     Route: 048
     Dates: start: 20040828

REACTIONS (4)
  - HYDRONEPHROSIS [None]
  - LEUKOPENIA [None]
  - LYMPHOCELE [None]
  - URETERIC STENOSIS [None]
